FAERS Safety Report 16657881 (Version 3)
Quarter: 2019Q3

REPORT INFORMATION
  Report Type: Spontaneous
  Country: JP (occurrence: JP)
  Receive Date: 20190801
  Receipt Date: 20190807
  Transmission Date: 20191004
  Serious: Yes (Life-Threatening, Hospitalization, Other)
  Sender: FDA-Public Use
  Company Number: JP-PFIZER INC-2019327125

PATIENT
  Age: 39 Year
  Sex: Male

DRUGS (7)
  1. AMPICILLIN [Suspect]
     Active Substance: AMPICILLIN
     Indication: ANTIBIOTIC THERAPY
     Dosage: 12 G, 1X/DAY
     Dates: start: 2018
  2. CEFTRIAXONE SODIUM. [Suspect]
     Active Substance: CEFTRIAXONE SODIUM
     Indication: ANTIBIOTIC THERAPY
     Dosage: 4 G, 1X/DAY
     Dates: start: 2018
  3. DEXAMETHASONE. [Suspect]
     Active Substance: DEXAMETHASONE
     Indication: STEROID THERAPY
     Dosage: 40 MG, 1X/DAY (BY MOUTH)
     Route: 048
     Dates: start: 2018
  4. MEROPENEM. [Concomitant]
     Active Substance: MEROPENEM
     Indication: ANTIBIOTIC THERAPY
     Dosage: 6 G, 1X/DAY (ON DAY 2)
     Dates: start: 2018
  5. CEFTRIAXONE SODIUM. [Suspect]
     Active Substance: CEFTRIAXONE SODIUM
     Indication: MENINGITIS BACTERIAL
  6. AMPICILLIN [Suspect]
     Active Substance: AMPICILLIN
     Indication: MENINGITIS BACTERIAL
  7. MEROPENEM. [Concomitant]
     Active Substance: MEROPENEM
     Indication: MENINGITIS BACTERIAL

REACTIONS (1)
  - Liver injury [Unknown]

NARRATIVE: CASE EVENT DATE: 2018
